FAERS Safety Report 9559786 (Version 1)
Quarter: 2013Q3

REPORT INFORMATION
  Report Type: Spontaneous
  Country: US (occurrence: US)
  Receive Date: 20130927
  Receipt Date: 20130927
  Transmission Date: 20140515
  Serious: Yes (Other)
  Sender: FDA-Public Use
  Company Number: US-PFIZER INC-2013276896

PATIENT
  Sex: Male

DRUGS (2)
  1. MORPHINE SULFATE [Suspect]
     Dosage: UNK
     Route: 065
  2. OXYCONTIN [Suspect]
     Dosage: UNK
     Route: 048

REACTIONS (1)
  - Renal failure [Unknown]
